FAERS Safety Report 19026954 (Version 4)
Quarter: 2022Q1

REPORT INFORMATION
  Report Type: Spontaneous
  Country: PL (occurrence: PL)
  Receive Date: 20210318
  Receipt Date: 20220316
  Transmission Date: 20220423
  Serious: Yes (Hospitalization, Other)
  Sender: FDA-Public Use
  Company Number: NVSC2021PL058600

PATIENT
  Age: 46 Year
  Sex: Male

DRUGS (26)
  1. ENTRESTO [Suspect]
     Active Substance: SACUBITRIL\VALSARTAN
     Indication: Cardiac failure chronic
     Dosage: 2 DF (OF 49/51MG)/2 DF (OF 24/26MG)
     Route: 065
     Dates: start: 20191128
  2. ENTRESTO [Suspect]
     Active Substance: SACUBITRIL\VALSARTAN
     Dosage: 2 DF (OF 24/26MG)
     Route: 065
  3. ENTRESTO [Suspect]
     Active Substance: SACUBITRIL\VALSARTAN
     Dosage: UNK
     Route: 065
  4. ENTRESTO [Suspect]
     Active Substance: SACUBITRIL\VALSARTAN
     Dosage: 1 DF, Q12H
     Route: 065
  5. ENTRESTO [Suspect]
     Active Substance: SACUBITRIL\VALSARTAN
     Dosage: 2 DF (OF 49/51MG)
     Route: 065
  6. ENTRESTO [Suspect]
     Active Substance: SACUBITRIL\VALSARTAN
     Dosage: 1 DF, Q12H
     Route: 065
  7. ENTRESTO [Suspect]
     Active Substance: SACUBITRIL\VALSARTAN
     Dosage: 2 DF (OF 49/51MG), 2DF (OF 24/26MG)
     Route: 065
  8. ENTRESTO [Suspect]
     Active Substance: SACUBITRIL\VALSARTAN
     Dosage: 2 DF (OF 24/26MG)
     Route: 065
  9. ASPIRIN [Suspect]
     Active Substance: ASPIRIN
     Indication: Cardiac failure chronic
     Dosage: 1 DOSAGE FORM, QD
     Route: 048
  10. ASPIRIN [Suspect]
     Active Substance: ASPIRIN
     Route: 065
  11. RAMIPRIL [Suspect]
     Active Substance: RAMIPRIL
     Indication: Cardiac failure chronic
     Dosage: 1 DOSAGE FORM, QD
     Route: 065
  12. RAMIPRIL [Suspect]
     Active Substance: RAMIPRIL
     Dosage: 1 DOSAGE FORM, QD
     Route: 048
  13. TORSEMIDE [Suspect]
     Active Substance: TORSEMIDE
     Indication: Cardiac failure chronic
     Dosage: 20 MG, QD
     Route: 065
  14. ROSUVASTATIN [Suspect]
     Active Substance: ROSUVASTATIN
     Indication: Cardiac failure chronic
     Dosage: 1 DOSAGE FORM, QD
     Route: 065
  15. CARVEDILOL [Suspect]
     Active Substance: CARVEDILOL
     Indication: Cardiac failure chronic
     Dosage: 1 DOSAGE FORM, BID
     Route: 065
  16. CARVEDILOL [Suspect]
     Active Substance: CARVEDILOL
     Dosage: 2 DOSAGE FORM, QD
     Route: 065
  17. CARVEDILOL [Suspect]
     Active Substance: CARVEDILOL
     Dosage: 1 DOSAGE FORM, QD
     Route: 065
  18. CARVEDILOL [Suspect]
     Active Substance: CARVEDILOL
     Route: 065
  19. CARVEDILOL [Suspect]
     Active Substance: CARVEDILOL
     Dosage: 2 DOSAGE FORM, QD (1 DF, BID)
     Route: 065
  20. EPLERENONE [Suspect]
     Active Substance: EPLERENONE
     Indication: Cardiac failure chronic
     Dosage: 1 DF,QD (AT NOON)
     Route: 065
  21. ATORVASTATIN CALCIUM [Suspect]
     Active Substance: ATORVASTATIN CALCIUM
     Indication: Cardiac failure chronic
     Dosage: 1 DOSAGE FORM, QD
     Route: 048
  22. IVABRADINE [Suspect]
     Active Substance: IVABRADINE
     Indication: Cardiac failure chronic
     Dosage: 10 DF, QD, (0.5 DF, BID)
     Route: 065
  23. IVABRADINE [Suspect]
     Active Substance: IVABRADINE
     Dosage: 5 DOSAGE FORM, Q12H
     Route: 065
  24. IVABRADINE [Suspect]
     Active Substance: IVABRADINE
     Dosage: 1 DOSAGE FORM, QD
     Route: 065
  25. IVABRADINE [Suspect]
     Active Substance: IVABRADINE
     Dosage: 10 DOSAGE FORM, QD
     Route: 065
     Dates: start: 20190522
  26. IVABRADINE [Suspect]
     Active Substance: IVABRADINE
     Dosage: 1 DOSAGE FORM, QD (0.5 DF, BID)
     Route: 065

REACTIONS (10)
  - Bradycardia [Unknown]
  - Feeling abnormal [Unknown]
  - Hypotension [Unknown]
  - Computerised tomogram coronary artery [Unknown]
  - Electrocardiogram abnormal [Unknown]
  - Cardiac failure [Recovered/Resolved]
  - Cardiac failure [Recovered/Resolved]
  - Cardiac failure [Recovered/Resolved]
  - Overdose [Recovered/Resolved]
  - Overdose [Unknown]

NARRATIVE: CASE EVENT DATE: 20190522
